FAERS Safety Report 7338134-4 (Version None)
Quarter: 2011Q1

REPORT INFORMATION
  Report Type: 
  Country: None (occurrence: None)
  Receive Date: 20110308
  Receipt Date: 20110302
  Transmission Date: 20110831
  Serious: Yes (Death, Hospitalization, Other)
  Sender: FDA-Public Use
  Company Number: PHHY2011JP11475

PATIENT
  Sex: Male

DRUGS (50)
  1. CICLOSPORIN [Suspect]
     Dosage: 250 MG, UNK
     Route: 048
     Dates: start: 19990303, end: 19990303
  2. CICLOSPORIN [Suspect]
     Dosage: 235 MG, UNK
     Route: 048
     Dates: start: 20011015, end: 20020311
  3. CICLOSPORIN [Suspect]
     Dosage: 225 MG, UNK
     Route: 048
     Dates: start: 20020312, end: 20030602
  4. CICLOSPORIN [Suspect]
     Dosage: UNK
  5. CELLCEPT [Suspect]
     Dosage: 2 G, UNK
     Route: 048
     Dates: start: 19990322
  6. CICLOSPORIN [Suspect]
     Dosage: 325 MG, UNK
     Route: 048
     Dates: start: 19990304, end: 19990304
  7. CICLOSPORIN [Suspect]
     Dosage: 300 MG, UNK
     Route: 048
     Dates: start: 19990317, end: 19990317
  8. CICLOSPORIN [Suspect]
     Dosage: 210 MG, UNK
     Route: 048
     Dates: start: 20030610, end: 20030610
  9. CICLOSPORIN [Suspect]
     Dosage: 200 MG, UNK
     Route: 048
     Dates: start: 20030715, end: 20030722
  10. CICLOSPORIN [Suspect]
     Dosage: 150 MG, UNK
     Route: 048
     Dates: start: 20081225, end: 20090430
  11. CELLCEPT [Suspect]
     Dosage: 1 G, DAILY
  12. CICLOSPORIN [Suspect]
     Indication: HEART TRANSPLANT
     Dosage: 75 MG, UNK
     Route: 048
     Dates: start: 19990301, end: 19990301
  13. CICLOSPORIN [Suspect]
     Dosage: 250 MG, UNK
     Route: 048
     Dates: start: 19990318, end: 19990322
  14. CICLOSPORIN [Suspect]
     Dosage: 250 MG, UNK
     Route: 048
     Dates: start: 19990503, end: 20011014
  15. CICLOSPORIN [Suspect]
     Dosage: 200 MG, UNK
     Route: 048
     Dates: start: 20030603, end: 20030609
  16. CICLOSPORIN [Suspect]
     Dosage: 200 MG, UNK
     Route: 048
     Dates: start: 20030728, end: 20040913
  17. CICLOSPORIN [Suspect]
     Dosage: 225 MG, UNK
     Route: 048
     Dates: start: 20041004, end: 20041004
  18. CICLOSPORIN [Suspect]
     Dosage: 150 MG, UNK
     Route: 048
     Dates: start: 20080815, end: 20081010
  19. CICLOSPORIN [Suspect]
     Dosage: 100 MG, UNK
     Route: 048
     Dates: start: 20081011, end: 20081014
  20. PACLITAXEL [Concomitant]
  21. CICLOSPORIN [Suspect]
     Dosage: 350 MG, UNK
     Route: 048
     Dates: start: 19990305, end: 19990307
  22. CICLOSPORIN [Suspect]
     Dosage: 400 MG, UNK
     Route: 048
     Dates: start: 19990308, end: 19990313
  23. CICLOSPORIN [Suspect]
     Dosage: 350 MG, UNK
     Route: 048
     Dates: start: 19990315, end: 19990315
  24. CICLOSPORIN [Suspect]
     Dosage: 260 MG, UNK
     Route: 048
     Dates: start: 19990412, end: 19990502
  25. CICLOSPORIN [Suspect]
     Dosage: 200 MG, UNK
     Route: 048
     Dates: start: 20041005, end: 20080605
  26. CELLCEPT [Suspect]
     Indication: HEART TRANSPLANT
     Dosage: 2 G, DAILY
     Route: 048
     Dates: start: 19990308
  27. CICLOSPORIN [Suspect]
     Dosage: 200 MG, UNK
     Route: 048
     Dates: start: 19990302, end: 19990302
  28. CICLOSPORIN [Suspect]
     Dosage: 325 MG, UNK
     Route: 048
     Dates: start: 19990316, end: 19990316
  29. CICLOSPORIN [Suspect]
     Dosage: 275 MG, UNK
     Route: 048
     Dates: start: 19990410, end: 19990411
  30. CICLOSPORIN [Suspect]
     Dosage: 170 MG, UNK
     Route: 048
     Dates: start: 20030723, end: 20030727
  31. CICLOSPORIN [Suspect]
     Dosage: 140 MG, UNK
     Route: 048
     Dates: start: 20090522, end: 20090820
  32. CICLOSPORIN [Suspect]
     Dosage: 275 MG, UNK
     Route: 048
     Dates: start: 19990323, end: 19990324
  33. CICLOSPORIN [Suspect]
     Dosage: 250 MG, UNK
     Dates: start: 19990409, end: 19990409
  34. CICLOSPORIN [Suspect]
     Dosage: 220 MG, UNK
     Route: 048
     Dates: start: 20030611, end: 20030714
  35. CELLCEPT [Suspect]
     Dosage: 0.5 G, UNK
     Route: 048
     Dates: end: 20050124
  36. CICLOSPORIN [Suspect]
     Dosage: 375 MG, UNK
     Dates: start: 19990314, end: 19990314
  37. CICLOSPORIN [Suspect]
     Dosage: 140 MG, UNK
     Route: 048
     Dates: start: 20080803, end: 20080804
  38. CICLOSPORIN [Suspect]
     Dosage: 150 MG, UNK
     Route: 048
     Dates: start: 20080805, end: 20080807
  39. CICLOSPORIN [Suspect]
     Dosage: 125 MG, UNK
     Route: 048
     Dates: start: 20090501, end: 20090521
  40. AZATHIOPRINE [Concomitant]
     Indication: HEART TRANSPLANT
     Dosage: 0.1 G, UNK
     Route: 048
     Dates: start: 19990302, end: 19990306
  41. IRINOTECAN HCL [Concomitant]
  42. CICLOSPORIN [Suspect]
     Dosage: 250 MG, UNK
     Route: 048
     Dates: start: 19990325, end: 19990407
  43. CICLOSPORIN [Suspect]
     Dosage: 275 MG, UNK
     Route: 048
     Dates: start: 19990408, end: 19990408
  44. CICLOSPORIN [Suspect]
     Dosage: 250 MG, UNK
     Route: 048
     Dates: start: 20040914, end: 20041003
  45. CICLOSPORIN [Suspect]
     Dosage: 175 MG, UNK
     Route: 048
     Dates: start: 20080805, end: 20080807
  46. CICLOSPORIN [Suspect]
     Dosage: 160 MG, UNK
     Route: 048
     Dates: start: 20080808, end: 20080814
  47. CICLOSPORIN [Suspect]
     Dosage: 50 MG, UNK
     Route: 048
     Dates: start: 20081016, end: 20081224
  48. CICLOSPORIN [Suspect]
     Dosage: 150 MG, UNK
     Route: 048
     Dates: start: 20090821, end: 20091118
  49. CHEMOTHERAPEUTICS NOS [Concomitant]
  50. DOCETAXEL [Concomitant]

REACTIONS (3)
  - GASTRIC CANCER [None]
  - WHITE BLOOD CELL COUNT DECREASED [None]
  - METASTASES TO LIVER [None]
